FAERS Safety Report 6610617-1 (Version None)
Quarter: 2010Q1

REPORT INFORMATION
  Report Type: 
  Country: None (occurrence: None)
  Receive Date: 20100302
  Receipt Date: 20100217
  Transmission Date: 20100710
  Serious: Yes (Other)
  Sender: FDA-Public Use
  Company Number: US-TYCO HEALTHCARE/MALLINCKRODT-T201000658

PATIENT
  Age: 27 Year
  Sex: Female

DRUGS (1)
  1. ACETAMINOPHEN AND HYDROCODONE BITARTRATE [Suspect]
     Indication: BACK PAIN
     Dosage: 7.5/500 MG, QID
     Route: 045

REACTIONS (4)
  - DRUG ABUSE [None]
  - FOREIGN BODY [None]
  - ORAL CAVITY FISTULA [None]
  - SPEECH DISORDER [None]
